FAERS Safety Report 4521249-3 (Version None)
Quarter: 2004Q4

REPORT INFORMATION
  Report Type: 
  Country: None (occurrence: None)
  Receive Date: 20041203
  Receipt Date: 20041122
  Transmission Date: 20050328
  Serious: Yes (Hospitalization)
  Sender: FDA-Public Use
  Company Number: 2004CG02349

PATIENT
  Age: 68 Year
  Sex: Male
  Weight: 99 kg

DRUGS (8)
  1. OMEPRAZOLE [Suspect]
     Dosage: 20 MG DAILY PO
     Route: 048
  2. PROGRAF [Suspect]
     Indication: RENAL TRANSPLANT
     Dosage: 5 MG BID PO
     Route: 048
     Dates: start: 20040925, end: 20041004
  3. PROGRAF [Suspect]
     Indication: RENAL TRANSPLANT
     Dosage: 6 MG DAILY PO
     Route: 048
     Dates: start: 20041001, end: 20041004
  4. PROGRAF [Suspect]
     Indication: RENAL TRANSPLANT
     Dosage: 3 MG DAILY PO
     Route: 048
     Dates: start: 20041004
  5. PYOSTACINE [Concomitant]
     Indication: ERYSIPELAS
     Dosage: 500 MG DAILY PO
     Route: 048
     Dates: start: 20041003, end: 20041004
  6. BACTRIM [Suspect]
     Dosage: 1 DF DAILY
     Dates: end: 20041001
  7. PREVISCAN [Suspect]
     Dates: end: 20041004
  8. CELLCEPT [Suspect]
     Indication: RENAL TRANSPLANT
     Dosage: 500 MG BID PO
     Route: 048

REACTIONS (6)
  - BLOOD POTASSIUM INCREASED [None]
  - DRUG INTERACTION [None]
  - ERYSIPELAS [None]
  - IMMUNOSUPPRESSANT DRUG LEVEL INCREASED [None]
  - OLIGURIA [None]
  - RENAL FAILURE ACUTE [None]
